FAERS Safety Report 6064847-0 (Version None)
Quarter: 2009Q1

REPORT INFORMATION
  Report Type: 
  Country: None (occurrence: None)
  Receive Date: 20090203
  Receipt Date: 20090203
  Transmission Date: 20090719
  Serious: Yes (Other)
  Sender: FDA-Public Use
  Company Number: None

PATIENT
  Age: 56 Year
  Sex: Female
  Weight: 96.1626 kg

DRUGS (1)
  1. LEVOTHYROXINE SODIUM [Suspect]
     Indication: HYPOTHYROIDISM
     Dosage: 88MCG 1TAB PER DAY PO
     Route: 048
     Dates: start: 19970101, end: 19970101

REACTIONS (2)
  - NERVOUSNESS [None]
  - PRODUCT QUALITY ISSUE [None]
